FAERS Safety Report 4930684-0 (Version None)
Quarter: 2006Q1

REPORT INFORMATION
  Report Type: 
  Country: None (occurrence: None)
  Receive Date: 20060227
  Receipt Date: 20060215
  Transmission Date: 20060701
  Serious: Yes (Life-Threatening, Other)
  Sender: FDA-Public Use
  Company Number: 2006024724

PATIENT
  Age: 48 Year
  Sex: Female

DRUGS (2)
  1. ZYVOX [Suspect]
     Indication: ILL-DEFINED DISORDER
  2. DRUG UNSPECIFIED (DRUG UNSPECIFIED) [Concomitant]

REACTIONS (1)
  - UNEVALUABLE EVENT [None]
